FAERS Safety Report 7036035-2 (Version None)
Quarter: 2010Q4

REPORT INFORMATION
  Report Type: 
  Country: None (occurrence: None)
  Receive Date: 20101008
  Receipt Date: 20101001
  Transmission Date: 20110411
  Serious: Yes (Hospitalization)
  Sender: FDA-Public Use
  Company Number: BR-BAUSCH-2010BL005581

PATIENT
  Age: 44 Year
  Sex: Male

DRUGS (1)
  1. NAPHAZOLINE HCL [Suspect]
     Indication: INFLUENZA LIKE ILLNESS
     Route: 045

REACTIONS (1)
  - HAEMORRHAGIC STROKE [None]
